FAERS Safety Report 24753019 (Version 3)
Quarter: 2025Q1

REPORT INFORMATION
  Report Type: Spontaneous
  Country: CH (occurrence: CH)
  Receive Date: 20241219
  Receipt Date: 20250225
  Transmission Date: 20250408
  Serious: Yes (Other)
  Sender: CHIESI
  Company Number: CH-CHIESI-2024CHF08010

PATIENT
  Sex: Male

DRUGS (3)
  1. LOMITAPIDE MESYLATE [Suspect]
     Active Substance: LOMITAPIDE MESYLATE
     Indication: Type IIa hyperlipidaemia
     Route: 048
     Dates: end: 2024
  2. LOMITAPIDE MESYLATE [Suspect]
     Active Substance: LOMITAPIDE MESYLATE
     Route: 048
     Dates: start: 2024, end: 2024
  3. LOMITAPIDE MESYLATE [Suspect]
     Active Substance: LOMITAPIDE MESYLATE
     Route: 048
     Dates: start: 2024

REACTIONS (2)
  - Hepatic fibrosis [Unknown]
  - Hepatic steatosis [Not Recovered/Not Resolved]
